FAERS Safety Report 14565866 (Version 4)
Quarter: 2018Q2

REPORT INFORMATION
  Report Type: Spontaneous
  Country: IT (occurrence: IT)
  Receive Date: 20180223
  Receipt Date: 20180424
  Transmission Date: 20180711
  Serious: Yes (Hospitalization, Other)
  Sender: FDA-Public Use
  Company Number: IT-AUROBINDO-AUR-APL-2018-009468

PATIENT
  Age: 34 Year
  Sex: Male

DRUGS (26)
  1. PARACETAMOL [Suspect]
     Active Substance: ACETAMINOPHEN
     Indication: PRODUCT USED FOR UNKNOWN INDICATION
     Dosage: 500 MG, UNK
     Route: 048
  2. AUGMENTIN [Suspect]
     Active Substance: AMOXICILLIN\CLAVULANATE POTASSIUM
     Indication: PRODUCT USED FOR UNKNOWN INDICATION
     Dosage: IN TOTAL
     Route: 048
     Dates: start: 20180222
  3. NORMIX [Suspect]
     Active Substance: RIFAXIMIN
     Dosage: SOME TABLETS (STRENGTH: 200MG) ()
     Route: 048
     Dates: start: 20170222
  4. ZIRTEC [Suspect]
     Active Substance: CETIRIZINE HYDROCHLORIDE
     Dosage: UNK ()
     Route: 048
  5. ZIRTEC [Suspect]
     Active Substance: CETIRIZINE HYDROCHLORIDE
     Dosage: UNK ()
     Route: 048
  6. ALCOHOL. [Concomitant]
     Active Substance: ALCOHOL
     Indication: PRODUCT USED FOR UNKNOWN INDICATION
     Route: 065
  7. ENOXAPARIN [Suspect]
     Active Substance: ENOXAPARIN
     Dosage: UNK UNK, QD (1)
     Route: 058
  8. NORMIX [Suspect]
     Active Substance: RIFAXIMIN
     Dosage: UNK ()
     Route: 048
  9. IBUPROFEN. [Suspect]
     Active Substance: IBUPROFEN
     Indication: PRODUCT USED FOR UNKNOWN INDICATION
     Dosage: UNK
     Route: 048
     Dates: start: 20180222
  10. ENOXAPARIN [Suspect]
     Active Substance: ENOXAPARIN
     Dosage: 4/5 AMPOULES OF ENOXAPARIN (ACTIVE SUBSTANCE) 4000 IU INJECTABLE SOLUTION FOR SUBCUTANEOUS USE ()
     Route: 058
     Dates: start: 20170222
  11. COCAINE [Suspect]
     Active Substance: COCAINE
     Dosage: UNK
     Route: 065
  12. COCAINE [Suspect]
     Active Substance: COCAINE
     Dosage: UNK ()
     Dates: start: 20170222
  13. COCAINE [Suspect]
     Active Substance: COCAINE
     Dosage: ()
  14. COCAINE [Suspect]
     Active Substance: COCAINE
     Dosage: ()
     Route: 065
  15. ZIRTEC [Suspect]
     Active Substance: CETIRIZINE HYDROCHLORIDE
     Indication: PRODUCT USED FOR UNKNOWN INDICATION
     Dosage: ()
     Route: 048
     Dates: start: 20180222
  16. COCAINE [Suspect]
     Active Substance: COCAINE
     Dosage: UNK ()
  17. ENOXAPARIN [Suspect]
     Active Substance: ENOXAPARIN
     Dosage: 4/5 AMPOULES OF ENOXAPARIN (ACTIVE SUBSTANCE) 4000 IU INJECTABLE SOLUTION FOR SUBCUTANEOUS USE ()
     Route: 048
  18. COCAINE [Suspect]
     Active Substance: COCAINE
     Indication: PRODUCT USED FOR UNKNOWN INDICATION
     Dosage: UNK
     Route: 065
  19. AUGMENTIN [Suspect]
     Active Substance: AMOXICILLIN\CLAVULANATE POTASSIUM
     Dosage: 6 DF, TOTAL (1 DAY) ; IN TOTAL
     Route: 048
     Dates: start: 20170222
  20. ENOXAPARIN [Suspect]
     Active Substance: ENOXAPARIN
     Indication: PRODUCT USED FOR UNKNOWN INDICATION
     Dosage: ()
     Route: 058
     Dates: start: 20180222
  21. ENOXAPARIN [Suspect]
     Active Substance: ENOXAPARIN
     Dosage: UNK ()
     Route: 058
  22. ENOXAPARIN [Suspect]
     Active Substance: ENOXAPARIN
     Dosage: 4/5 AMPOULES OF ENOXAPARIN (ACTIVE SUBSTANCE) 4000 IU INJECTABLE SOLUTION FOR SUBCUTANEOUS USE ()
     Route: 058
  23. NORMIX [Suspect]
     Active Substance: RIFAXIMIN
     Indication: PRODUCT USED FOR UNKNOWN INDICATION
     Dosage: UNK
     Route: 048
     Dates: start: 20180222
  24. NORMIX [Suspect]
     Active Substance: RIFAXIMIN
     Dosage: SOME TABLETS (STRENGTH: 200MG) ()
     Route: 048
  25. ZIRTEC [Suspect]
     Active Substance: CETIRIZINE HYDROCHLORIDE
     Dosage: UNK ()
     Route: 048
  26. COCAINE [Suspect]
     Active Substance: COCAINE
     Dosage: ()
     Route: 065

REACTIONS (3)
  - Sopor [Unknown]
  - Drug abuse [Unknown]
  - Abdominal pain upper [Unknown]

NARRATIVE: CASE EVENT DATE: 20170222
